FAERS Safety Report 15113999 (Version 1)
Quarter: 2018Q2

REPORT INFORMATION
  Report Type: Spontaneous
  Country: US (occurrence: US)
  Receive Date: 20180612
  Receipt Date: 20180612
  Transmission Date: 20180711
  Serious: Yes (Hospitalization)
  Sender: FDA-Public Use
  Company Number: None

PATIENT
  Age: 70 Year
  Sex: Male

DRUGS (2)
  1. CISPLATIN. [Suspect]
     Active Substance: CISPLATIN
     Indication: LYMPHOMA
     Route: 042
     Dates: start: 20180509, end: 20180509
  2. GEMCITABINE [Suspect]
     Active Substance: GEMCITABINE\GEMCITABINE HYDROCHLORIDE
     Indication: LYMPHOMA
     Route: 042
     Dates: start: 20180509, end: 20180509

REACTIONS (3)
  - Splenomegaly [None]
  - Bone marrow failure [None]
  - Thrombocytopenia [None]

NARRATIVE: CASE EVENT DATE: 20180515
